FAERS Safety Report 14501954 (Version 1)
Quarter: 2018Q1

REPORT INFORMATION
  Report Type: Spontaneous
  Country: US (occurrence: US)
  Receive Date: 20180208
  Receipt Date: 20180208
  Transmission Date: 20180509
  Serious: Yes (Death, Hospitalization)
  Sender: FDA-Public Use
  Company Number: US-CIPLA LTD.-2018US03296

PATIENT

DRUGS (1)
  1. AMLODIPINE [Suspect]
     Active Substance: AMLODIPINE BESYLATE
     Indication: PRODUCT USED FOR UNKNOWN INDICATION
     Dosage: 10 MG (50 TABLETS)
     Route: 065

REACTIONS (9)
  - Intentional overdose [Unknown]
  - Cardiac failure [Unknown]
  - Condition aggravated [Unknown]
  - Pulmonary oedema [Unknown]
  - Metabolic acidosis [Unknown]
  - Peripheral ischaemia [Unknown]
  - Multiple organ dysfunction syndrome [Unknown]
  - Death [Fatal]
  - Electrolyte imbalance [Unknown]
